FAERS Safety Report 12178119 (Version 1)
Quarter: 2016Q1

REPORT INFORMATION
  Report Type: Spontaneous
  Country: US (occurrence: US)
  Receive Date: 20160314
  Receipt Date: 20160314
  Transmission Date: 20160526
  Serious: No
  Sender: FDA-Public Use
  Company Number: US-SA-2016SA040175

PATIENT
  Sex: Male

DRUGS (8)
  1. TOUJEO [Suspect]
     Active Substance: INSULIN GLARGINE
     Dosage: DOSE:6 UNIT(S)
     Route: 065
  2. TOUJEO [Suspect]
     Active Substance: INSULIN GLARGINE
     Dosage: DOSE:75 UNIT(S)
     Route: 065
  3. TOUJEO [Suspect]
     Active Substance: INSULIN GLARGINE
     Dosage: DOSE:48 UNIT(S)
     Route: 065
  4. TOUJEO [Suspect]
     Active Substance: INSULIN GLARGINE
     Dosage: DOSE:108 UNIT(S)
     Route: 065
  5. TOUJEO [Suspect]
     Active Substance: INSULIN GLARGINE
     Dosage: TITERATED UP TO 36 U DOSE:36 UNIT(S)
     Route: 065
  6. TOUJEO [Suspect]
     Active Substance: INSULIN GLARGINE
     Dosage: DOSE:42 UNIT(S)
     Route: 065
  7. SOLOSTAR [Concomitant]
     Active Substance: DEVICE
  8. TOUJEO [Suspect]
     Active Substance: INSULIN GLARGINE
     Dosage: TITERATED UP TO 16 UNITS DAILY DOSE:16 UNIT(S)
     Route: 065

REACTIONS (3)
  - Hyperglycaemia [Unknown]
  - Hypoglycaemia [Unknown]
  - Drug administration error [Unknown]
